FAERS Safety Report 16620006 (Version 1)
Quarter: 2019Q3

REPORT INFORMATION
  Report Type: Spontaneous
  Country: US (occurrence: US)
  Receive Date: 20190723
  Receipt Date: 20190723
  Transmission Date: 20191004
  Serious: No
  Sender: FDA-Public Use
  Company Number: US-IGSA-SR10007343

PATIENT
  Age: 59 Year
  Sex: Male
  Weight: 80.7 kg

DRUGS (1)
  1. GAMUNEX-C [Suspect]
     Active Substance: HUMAN IMMUNOGLOBULIN G
     Indication: NEUROPATHY PERIPHERAL
     Dosage: 150 G, Q.M.T.
     Route: 042
     Dates: start: 2016

REACTIONS (1)
  - Antibody test abnormal [Recovering/Resolving]

NARRATIVE: CASE EVENT DATE: 201802
